FAERS Safety Report 9184914 (Version 1)
Quarter: 2013Q1

REPORT INFORMATION
  Report Type: Spontaneous
  Country: US (occurrence: US)
  Receive Date: 20130325
  Receipt Date: 20130325
  Transmission Date: 20140127
  Serious: Yes (Other)
  Sender: FDA-Public Use
  Company Number: US-ROXANE LABORATORIES, INC.-2013-RO-00399RO

PATIENT
  Age: 53 Year
  Sex: Female

DRUGS (6)
  1. PREDNISONE [Suspect]
     Indication: CUTANEOUS SARCOIDOSIS
     Dosage: 15 MG
     Route: 048
     Dates: end: 201111
  2. METHOTREXATE [Suspect]
     Indication: CUTANEOUS SARCOIDOSIS
  3. MYCOPHENOLATE MOFETIL [Suspect]
     Indication: CUTANEOUS SARCOIDOSIS
     Dosage: 4 G
     Dates: start: 200312, end: 200805
  4. MINOCYCLINE [Suspect]
     Indication: CUTANEOUS SARCOIDOSIS
  5. TACROLIMUS [Suspect]
     Indication: CUTANEOUS SARCOIDOSIS
     Route: 061
  6. IMIQUIMOD [Suspect]
     Indication: CUTANEOUS SARCOIDOSIS
     Route: 061

REACTIONS (4)
  - Treatment failure [Recovered/Resolved]
  - Hypertension [Unknown]
  - Diabetes mellitus [Unknown]
  - Osteonecrosis [Unknown]
